FAERS Safety Report 4350471-4 (Version None)
Quarter: 2004Q2

REPORT INFORMATION
  Report Type: 
  Country: None (occurrence: None)
  Receive Date: 20040427
  Receipt Date: 20040414
  Transmission Date: 20050107
  Serious: Yes (Hospitalization, Other)
  Sender: FDA-Public Use
  Company Number: ENT 2004-0074

PATIENT
  Age: 76 Year
  Sex: Male

DRUGS (8)
  1. COMTAN [Suspect]
     Indication: PARKINSON'S DISEASE
     Dosage: EVERY 6 HOUR, ORAL
     Route: 048
  2. EXELON [Suspect]
     Indication: PARKINSON'S DISEASE
     Dosage: 12 MG, 2 IN 1 D, ORAL
     Route: 048
     Dates: start: 20030301
  3. SINEMET (UNKNOWN) [Suspect]
     Dosage: EVERY 6 HOUR
  4. ZESTRIL [Concomitant]
  5. LANOXIN [Concomitant]
  6. TOPROL-XL [Concomitant]
  7. PROZAC [Concomitant]
  8. ASA [Concomitant]

REACTIONS (8)
  - DEPRESSED LEVEL OF CONSCIOUSNESS [None]
  - DIZZINESS [None]
  - DYSKINESIA [None]
  - FALL [None]
  - FRACTURED SACRUM [None]
  - HALLUCINATION [None]
  - MUSCLE RIGIDITY [None]
  - SOMNOLENCE [None]
